FAERS Safety Report 5555989-4 (Version None)
Quarter: 2007Q4

REPORT INFORMATION
  Report Type: 
  Country: None (occurrence: None)
  Receive Date: 20071213
  Receipt Date: 20071129
  Transmission Date: 20080405
  Serious: Yes (Hospitalization)
  Sender: FDA-Public Use
  Company Number: JP-PFIZER INC-2007103632

PATIENT
  Age: 24 Month

DRUGS (3)
  1. AMLODIPINE [Suspect]
     Route: 048
  2. ATENOLOL [Suspect]
     Dosage: TEXT:4DF-FREQ:QD
     Route: 048
  3. AMOBAN [Suspect]
     Route: 048

REACTIONS (3)
  - ACCIDENTAL DRUG INTAKE BY CHILD [None]
  - ACCIDENTAL OVERDOSE [None]
  - MULTIPLE DRUG OVERDOSE ACCIDENTAL [None]
